FAERS Safety Report 5285450-6 (Version None)
Quarter: 2007Q1

REPORT INFORMATION
  Report Type: 
  Country: None (occurrence: None)
  Receive Date: 20070328
  Receipt Date: 20070319
  Transmission Date: 20070707
  Serious: Yes (Other)
  Sender: FDA-Public Use
  Company Number: 07H-163-0312311-00

PATIENT
  Age: 36 Year
  Sex: Male

DRUGS (8)
  1. BUPIVACAINE [Suspect]
     Indication: LOCAL ANAESTHESIA
     Dosage: 30 ML, INJECTION
  2. PROPOFOL [Concomitant]
  3. FENTANYL [Concomitant]
  4. VECURONIUM (VECURONIUM) [Concomitant]
  5. ISOFLURANE [Concomitant]
  6. NITROUS OXIDE (NITROUS OXIDE) [Concomitant]
  7. OXYGEN (OXYGEN) [Concomitant]
  8. NEUROMUSCULAR REVERSAL AGENT [Concomitant]

REACTIONS (5)
  - AREFLEXIA [None]
  - BRAIN STEM SYNDROME [None]
  - DELAYED RECOVERY FROM ANAESTHESIA [None]
  - PARALYSIS [None]
  - UNRESPONSIVE TO STIMULI [None]
